FAERS Safety Report 5399058-5 (Version None)
Quarter: 2007Q3

REPORT INFORMATION
  Report Type: 
  Country: None (occurrence: None)
  Receive Date: 20070727
  Receipt Date: 20070724
  Transmission Date: 20080115
  Serious: Yes (Hospitalization)
  Sender: FDA-Public Use
  Company Number: DE-BRISTOL-MYERS SQUIBB COMPANY-13855028

PATIENT
  Age: 65 Year
  Sex: Male

DRUGS (5)
  1. CETUXIMAB [Suspect]
     Indication: NON-SMALL CELL LUNG CANCER
     Route: 042
     Dates: start: 20070508, end: 20070712
  2. DOCETAXEL [Suspect]
     Indication: NON-SMALL CELL LUNG CANCER
     Dosage: INITIAL DOSE 120 MG, 1 IN 3 WEEKS. 20-JUN-2007 TO 20-JUN-2007. INTRAVENOUS
     Route: 042
     Dates: start: 20070712
  3. GEMCITABINE HCL [Suspect]
     Indication: NON-SMALL CELL LUNG CANCER
     Route: 042
     Dates: start: 20070508
  4. UNACID [Concomitant]
     Dosage: UNACID 3*3G(18JUL07);2*3G(19JUL07;2DAILY ON 19JUL2007; 4DAILY SINCE 20JUL2007
     Route: 048
     Dates: end: 20070720
  5. ROCEPHIN [Concomitant]
     Route: 042
     Dates: start: 20070720

REACTIONS (1)
  - PYREXIA [None]
